FAERS Safety Report 9710077 (Version 1)
Quarter: 2013Q4

REPORT INFORMATION
  Report Type: Report from Study
  Country: US (occurrence: US)
  Receive Date: 20131126
  Receipt Date: 20131126
  Transmission Date: 20140711
  Serious: Yes (Other)
  Sender: FDA-Public Use
  Company Number: US-UCBSA-103465

PATIENT
  Age: 75 Year
  Sex: Female
  Weight: 49 kg

DRUGS (8)
  1. CERTOLIZUMAB PEGOL [Suspect]
     Indication: RHEUMATOID ARTHRITIS
     Dosage: NO OF DOSES RECIEVED: 25
     Route: 058
     Dates: start: 20120807, end: 20130709
  2. CERTOLIZUMAB PEGOL [Suspect]
     Indication: RHEUMATOID ARTHRITIS
     Dosage: NO OF DOSES RECIEVED: 3
     Route: 058
     Dates: start: 20120626, end: 20120724
  3. METHOTREXATE [Concomitant]
     Indication: RHEUMATOID ARTHRITIS
  4. PRESERVISION [Concomitant]
     Indication: GLAUCOMA
     Dosage: DOSE: 2 CAPSULE
     Route: 048
     Dates: start: 2009
  5. TIMOLOL [Concomitant]
     Indication: GLAUCOMA
     Dosage: DOSE: 2 DROPS
     Route: 047
     Dates: start: 2009
  6. PREDNISONE [Concomitant]
     Indication: RHEUMATOID ARTHRITIS
     Route: 048
     Dates: start: 20120510
  7. MOBIC [Concomitant]
     Indication: RHEUMATOID ARTHRITIS
     Route: 048
     Dates: start: 20120726
  8. FOLIC ACID [Concomitant]
     Indication: VITAMIN SUPPLEMENTATION
     Route: 048
     Dates: start: 20121228

REACTIONS (1)
  - Mycobacterium tuberculosis complex test positive [Recovering/Resolving]
